FAERS Safety Report 19090282 (Version 1)
Quarter: 2021Q2

REPORT INFORMATION
  Report Type: Spontaneous
  Country: JP (occurrence: JP)
  Receive Date: 20210404
  Receipt Date: 20210404
  Transmission Date: 20210717
  Serious: Yes (Other)
  Sender: FDA-Public Use
  Company Number: JP-SUN PHARMACEUTICAL INDUSTRIES LTD-2021RR-289284

PATIENT
  Age: 65 Year
  Sex: Female

DRUGS (1)
  1. GEMCITABINE. [Suspect]
     Active Substance: GEMCITABINE
     Indication: CHOLANGIOCARCINOMA
     Dosage: 800 MILLIGRAM/SQ. METER, 30 MIN IV INFUSION, ADMINISTERED ON DAYS 1, 8, 15, AND REPEATED EVERY 4 WK
     Route: 042

REACTIONS (1)
  - Disease progression [Unknown]
